FAERS Safety Report 19741181 (Version 1)
Quarter: 2021Q3

REPORT INFORMATION
  Report Type: Spontaneous
  Country: US (occurrence: US)
  Receive Date: 20210825
  Receipt Date: 20210825
  Transmission Date: 20211014
  Serious: No
  Sender: FDA-Public Use
  Company Number: US-ACCORD-192630

PATIENT
  Sex: Female
  Weight: 60.78 kg

DRUGS (1)
  1. ANASTROZOLE. [Suspect]
     Active Substance: ANASTROZOLE
     Indication: BREAST DISORDER
     Dosage: ONCE A DAY
     Route: 048
     Dates: start: 20200415

REACTIONS (3)
  - Grip strength decreased [Not Recovered/Not Resolved]
  - Insomnia [Not Recovered/Not Resolved]
  - Bone pain [Not Recovered/Not Resolved]
